FAERS Safety Report 8890167 (Version 1)
Quarter: 2012Q4

REPORT INFORMATION
  Report Type: Spontaneous
  Country: US (occurrence: None)
  Receive Date: 20121105
  Receipt Date: 20121105
  Transmission Date: 20130627
  Serious: Yes (Hospitalization)
  Sender: FDA-Public Use
  Company Number: None

PATIENT
  Age: 83 Year
  Sex: Female
  Weight: 54 kg

DRUGS (1)
  1. DABIGATRAN [Suspect]
     Dosage: 150mg  daily  po
     Route: 048

REACTIONS (6)
  - Melaena [None]
  - Abdominal pain [None]
  - Syncope [None]
  - Dizziness [None]
  - Asthenia [None]
  - Pallor [None]
